FAERS Safety Report 25342208 (Version 1)
Quarter: 2025Q2

REPORT INFORMATION
  Report Type: Spontaneous
  Country: US (occurrence: None)
  Receive Date: 20250520
  Receipt Date: 20250520
  Transmission Date: 20250716
  Serious: Yes (Death)
  Sender: FDA-CTU
  Company Number: None

PATIENT
  Age: 77 Year
  Sex: Male

DRUGS (1)
  1. VELTASSA [Suspect]
     Active Substance: PATIROMER
     Dosage: 1 DF DOSATE FORM DAILY ORAL
     Route: 048
     Dates: start: 20240501, end: 20250520

REACTIONS (1)
  - Death [None]

NARRATIVE: CASE EVENT DATE: 20250520
